FAERS Safety Report 5095510-0 (Version None)
Quarter: 2006Q3

REPORT INFORMATION
  Report Type: 
  Country: None (occurrence: None)
  Receive Date: 20060901
  Receipt Date: 20060901
  Transmission Date: 20061208
  Serious: Yes (Hospitalization)
  Sender: FDA-Public Use
  Company Number: None

PATIENT
  Age: 53 Year
  Sex: Female

DRUGS (3)
  1. FUDR [Suspect]
     Indication: COLON CANCER
     Dosage: FUDR 110 /KG WEEKLY IV
     Route: 042
     Dates: start: 20060517, end: 20060523
  2. AVASTIN [Suspect]
     Dosage: AVASTIN 75 MG/KG QO WEEK IV
     Route: 042
     Dates: start: 20060517, end: 20060523
  3. IRINOTECAN 110/M2 [Suspect]
     Dosage: 110/M2

REACTIONS (4)
  - ANAEMIA [None]
  - DIARRHOEA [None]
  - PYREXIA [None]
  - WOUND DEHISCENCE [None]
